FAERS Safety Report 6861514-8 (Version None)
Quarter: 2010Q3

REPORT INFORMATION
  Report Type: 
  Country: None (occurrence: None)
  Receive Date: 20100720
  Receipt Date: 20100716
  Transmission Date: 20110219
  Serious: Yes (Other)
  Sender: FDA-Public Use
  Company Number: US-BRISTOL-MYERS SQUIBB COMPANY-14776686

PATIENT
  Age: 82 Year
  Sex: Female
  Weight: 56 kg

DRUGS (10)
  1. COUMADIN [Suspect]
     Indication: ATRIAL FIBRILLATION
     Dosage: CURRENT DOSE 5MG AND 5.5MG,USE 3 DAYS OF 5.5MG AND USE 2 DAYS OF 5.5MG.
     Dates: start: 19950101
  2. CRANBERRY [Suspect]
     Dosage: PILL
  3. DIGOXIN [Concomitant]
  4. BLOOD PRESSURE PILL [Concomitant]
  5. CALCIUM [Concomitant]
  6. VITAMIN D [Concomitant]
  7. CRANBERRY [Concomitant]
     Dosage: TABS
  8. MULTI-VITAMIN [Concomitant]
  9. DILTIAZEM HCL [Concomitant]
  10. SIMVASTATIN [Concomitant]

REACTIONS (2)
  - CYSTITIS [None]
  - INTERNATIONAL NORMALISED RATIO FLUCTUATION [None]
